FAERS Safety Report 4664275-6 (Version None)
Quarter: 2005Q2

REPORT INFORMATION
  Report Type: 
  Country: None (occurrence: None)
  Receive Date: 20050516
  Receipt Date: 20050503
  Transmission Date: 20051028
  Serious: Yes (Other)
  Sender: FDA-Public Use
  Company Number: 26575

PATIENT
  Age: 86 Year
  Sex: Male

DRUGS (4)
  1. ALDARA [Suspect]
     Indication: BASAL CELL CARCINOMA
     Dosage: (1 , 5 IN 1 WEEK (S)) TOPICAL
     Route: 061
     Dates: start: 20050322, end: 20050418
  2. ENALAPRIL MALEATE [Concomitant]
  3. LEVOTHYROXINE SODIUM [Concomitant]
  4. CO-PROXAMOL [Concomitant]

REACTIONS (5)
  - APPLICATION SITE BRUISING [None]
  - APPLICATION SITE IRRITATION [None]
  - INFLUENZA LIKE ILLNESS [None]
  - NAUSEA [None]
  - SKIN IRRITATION [None]
